FAERS Safety Report 17765240 (Version 1)
Quarter: 2020Q2

REPORT INFORMATION
  Report Type: Spontaneous
  Country: US (occurrence: US)
  Receive Date: 20200508
  Receipt Date: 20200508
  Transmission Date: 20200714
  Serious: Yes (Hospitalization, Other)
  Sender: FDA-Public Use
  Company Number: None

PATIENT
  Age: 68 Year
  Sex: Male

DRUGS (2)
  1. XELJANZ XR [Suspect]
     Active Substance: TOFACITINIB CITRATE
     Indication: RHEUMATOID ARTHRITIS
     Route: 048
     Dates: start: 20180117, end: 20200307
  2. N/A [Concomitant]
     Active Substance: UNSPECIFIED INGREDIENT

REACTIONS (7)
  - Coronary artery bypass [None]
  - Condition aggravated [None]
  - Drug ineffective [None]
  - Pain in extremity [None]
  - Neck pain [None]
  - Therapy interrupted [None]
  - Musculoskeletal pain [None]

NARRATIVE: CASE EVENT DATE: 20191018
